FAERS Safety Report 23550484 (Version 3)
Quarter: 2024Q3

REPORT INFORMATION
  Report Type: Spontaneous
  Country: CO (occurrence: CO)
  Receive Date: 20240221
  Receipt Date: 20240927
  Transmission Date: 20241016
  Serious: Yes (Life-Threatening, Hospitalization, Other)
  Sender: SANDOZ
  Company Number: CO-002147023-NVSC2023CO113418

PATIENT
  Sex: Female
  Weight: 89 kg

DRUGS (12)
  1. AZATHIOPRINE [Suspect]
     Active Substance: AZATHIOPRINE
     Indication: Systemic lupus erythematosus
     Dosage: 50 MG
     Route: 065
     Dates: start: 2013
  2. CHLOROQUINE [Suspect]
     Active Substance: CHLOROQUINE
     Indication: Systemic lupus erythematosus
     Dosage: 200 MG
     Route: 065
     Dates: start: 2013
  3. FOLIC ACID [Suspect]
     Active Substance: FOLIC ACID
     Indication: Product used for unknown indication
     Dosage: UNK
     Route: 065
     Dates: start: 2013
  4. PREDNISOLONE [Suspect]
     Active Substance: PREDNISOLONE
     Indication: Product used for unknown indication
     Dosage: UNK
     Route: 065
  5. ELTROMBOPAG OLAMINE [Suspect]
     Active Substance: ELTROMBOPAG OLAMINE
     Dosage: 25 MG, QD
     Route: 048
  6. ELTROMBOPAG OLAMINE [Suspect]
     Active Substance: ELTROMBOPAG OLAMINE
     Indication: Immune thrombocytopenia
     Dosage: 50 MG, QD
     Route: 048
     Dates: start: 2021, end: 202302
  7. ELTROMBOPAG OLAMINE [Suspect]
     Active Substance: ELTROMBOPAG OLAMINE
     Dosage: 50 MG, QD, (4 YEARS AND A HALF AGO (THE EXACT DATE WAS NOT REPORTED)
     Route: 048
  8. ELTROMBOPAG OLAMINE [Suspect]
     Active Substance: ELTROMBOPAG OLAMINE
     Dosage: 25 MG, TID (EVERY 8 HOURS)
     Route: 048
  9. ELTROMBOPAG OLAMINE [Suspect]
     Active Substance: ELTROMBOPAG OLAMINE
     Dosage: 75 MG, QD
     Route: 048
     Dates: start: 20210510
  10. ELTROMBOPAG OLAMINE [Suspect]
     Active Substance: ELTROMBOPAG OLAMINE
     Dosage: 75 MG, QD
     Route: 048
  11. ELTROMBOPAG OLAMINE [Suspect]
     Active Substance: ELTROMBOPAG OLAMINE
     Dosage: 75 MG, QD (1 OF 25 MG, TID)
     Route: 048
     Dates: start: 202302
  12. ELTROMBOPAG OLAMINE [Suspect]
     Active Substance: ELTROMBOPAG OLAMINE
     Dosage: 75 MG, QD, (9 MONTHS AGO)
     Route: 048
     Dates: start: 2021

REACTIONS (28)
  - Fatigue [Not Recovered/Not Resolved]
  - Platelet count abnormal [Not Recovered/Not Resolved]
  - Periodontitis [Not Recovered/Not Resolved]
  - Contusion [Unknown]
  - Haemorrhage [Unknown]
  - Platelet count decreased [Unknown]
  - Systemic lupus erythematosus [Unknown]
  - Disease recurrence [Recovered/Resolved]
  - Heavy menstrual bleeding [Not Recovered/Not Resolved]
  - Pain [Unknown]
  - Vaginal haemorrhage [Unknown]
  - Uterine scar [Unknown]
  - Swelling [Unknown]
  - Feeling abnormal [Unknown]
  - Uterine pain [Unknown]
  - Pelvic pain [Unknown]
  - Haematocoele [Unknown]
  - Pain in extremity [Unknown]
  - Drug intolerance [Unknown]
  - Influenza [Unknown]
  - Discouragement [Unknown]
  - Nausea [Not Recovered/Not Resolved]
  - Arthralgia [Unknown]
  - Dizziness [Unknown]
  - Malaise [Unknown]
  - Headache [Unknown]
  - Depressed mood [Unknown]
  - Weight increased [Unknown]

NARRATIVE: CASE EVENT DATE: 20240101
